FAERS Safety Report 5209561-6 (Version None)
Quarter: 2006Q4

REPORT INFORMATION
  Report Type: 
  Country: None (occurrence: None)
  Receive Date: 20061124
  Receipt Date: 20051005
  Transmission Date: 20070319
  Serious: Yes (Hospitalization)
  Sender: FDA-Public Use
  Company Number: 2005-BP-17824BP

PATIENT
  Age: 58 Year
  Sex: Male
  Weight: 63 kg

DRUGS (26)
  1. AGGRENOX [Suspect]
     Indication: CEREBROVASCULAR ACCIDENT PROPHYLAXIS
     Dosage: SEE TEXT (SEE TEXT, 25 MG/200 MG (2 CAPSULE A DAY)), PO
     Route: 048
  2. AGGRENOX [Suspect]
     Indication: PROPHYLAXIS
     Dosage: SEE TEXT (SEE TEXT, 25 MG/200 MG (2 CAPSULE A DAY)), PO
     Route: 048
  3. AGGRENOX [Suspect]
     Indication: TRANSIENT ISCHAEMIC ATTACK
     Dosage: SEE TEXT (SEE TEXT, 25 MG/200 MG (2 CAPSULE A DAY)), PO
     Route: 048
  4. TMC 114 [Suspect]
     Indication: HIV INFECTION
     Dosage: SEE TEXT (600 MG, 2 PER DAY), PO
     Route: 048
     Dates: start: 20050908
  5. RITONAVIR(RITONAVIR) [Suspect]
     Indication: HIV INFECTION
     Dosage: PO
     Route: 048
     Dates: start: 20050908
  6. TENOFOVIR (TENOFOVIR) [Concomitant]
  7. GABAPENTIN [Concomitant]
  8. ATENOLOL [Concomitant]
  9. FAMOTIDINE [Concomitant]
  10. ACYCLOVIR [Concomitant]
  11. LISINOPRIL [Concomitant]
  12. DEPAKOTE [Concomitant]
  13. ALBUTEROL [Concomitant]
  14. NOVOLIN N [Concomitant]
  15. HYDROXYZINE [Concomitant]
  16. DAPSONE [Concomitant]
  17. TRICOR [Concomitant]
  18. VICODIN ES [Concomitant]
  19. MIRTAZAPINE [Concomitant]
  20. AVELOX [Concomitant]
  21. PROCRIT [Concomitant]
  22. PENTAMIDINE (PENTAMIDINE) [Concomitant]
  23. FLOMAX [Concomitant]
  24. RESTORIL [Concomitant]
  25. PLAVIX [Concomitant]
  26. SOLU-CORTEF [Concomitant]

REACTIONS (1)
  - RASH [None]
